FAERS Safety Report 5732905-3 (Version None)
Quarter: 2008Q2

REPORT INFORMATION
  Report Type: 
  Country: None (occurrence: None)
  Receive Date: 20080509
  Receipt Date: 20080228
  Transmission Date: 20081010
  Serious: No
  Sender: FDA-Public Use
  Company Number: A0712439A

PATIENT
  Age: 75 Year
  Sex: Female

DRUGS (3)
  1. COREG CR [Suspect]
     Indication: HYPERTENSION
     Dosage: 20MG PER DAY
     Route: 048
     Dates: start: 20080225
  2. CLONIDINE [Concomitant]
  3. LISINOPRIL [Concomitant]

REACTIONS (2)
  - DIZZINESS [None]
  - POLLAKIURIA [None]
